FAERS Safety Report 6641524-6 (Version None)
Quarter: 2010Q1

REPORT INFORMATION
  Report Type: 
  Country: None (occurrence: None)
  Receive Date: 20100318
  Receipt Date: 20100311
  Transmission Date: 20100710
  Serious: Yes (Other)
  Sender: FDA-Public Use
  Company Number: FR-AMGEN-QUU398935

PATIENT
  Sex: Female

DRUGS (1)
  1. ARANESP [Suspect]
     Indication: DRUG USE FOR UNKNOWN INDICATION

REACTIONS (4)
  - ARTHRALGIA [None]
  - BONE MARROW DISORDER [None]
  - BONE PAIN [None]
  - SPINAL OSTEOARTHRITIS [None]
